FAERS Safety Report 22329080 (Version 1)
Quarter: 2023Q2

REPORT INFORMATION
  Report Type: Other
  Country: US (occurrence: None)
  Receive Date: 20230517
  Receipt Date: 20230517
  Transmission Date: 20230722
  Serious: No
  Sender: FDA-Public Use
  Company Number: US-ROCHE-3067769

PATIENT

DRUGS (10)
  1. ENFUVIRTIDE [Suspect]
     Active Substance: ENFUVIRTIDE
     Indication: HIV infection
     Route: 065
  2. DARUNAVIR [Suspect]
     Active Substance: DARUNAVIR
     Indication: HIV infection
     Route: 065
  3. BICTEGRAVIR [Concomitant]
     Active Substance: BICTEGRAVIR
  4. EMTRICITABINE [Concomitant]
     Active Substance: EMTRICITABINE
  5. TENOFOVIR ALAFENAMIDE [Concomitant]
     Active Substance: TENOFOVIR ALAFENAMIDE
  6. COBICISTAT [Concomitant]
     Active Substance: COBICISTAT
  7. DORAVIRINE [Concomitant]
     Active Substance: DORAVIRINE
  8. IBALIZUMAB [Concomitant]
     Active Substance: IBALIZUMAB
  9. FOSTEMSAVIR [Concomitant]
     Active Substance: FOSTEMSAVIR
  10. COBICISTAT [Concomitant]
     Active Substance: COBICISTAT

REACTIONS (1)
  - Drug intolerance [Unknown]
